FAERS Safety Report 15592866 (Version 1)
Quarter: 2018Q4

REPORT INFORMATION
  Report Type: Spontaneous
  Country: GB (occurrence: FR)
  Receive Date: 20181107
  Receipt Date: 20181107
  Transmission Date: 20190205
  Serious: Yes (Life-Threatening)
  Sender: FDA-Public Use
  Company Number: FR-FRESENIUS KABI-FK201811462

PATIENT
  Age: 72 Year
  Sex: Male
  Weight: 103 kg

DRUGS (18)
  1. METOPIMAZINE [Concomitant]
     Active Substance: METOPIMAZINE
  2. FUROSEMIDE. [Concomitant]
     Active Substance: FUROSEMIDE
  3. POTASSIUM CHLORIDE. [Concomitant]
     Active Substance: POTASSIUM CHLORIDE
  4. LINEZOLID 2 MG/ML [Suspect]
     Active Substance: LINEZOLID
     Indication: INTERVERTEBRAL DISCITIS
     Dosage: 1800MG/DAY
     Route: 042
     Dates: start: 20181004, end: 20181008
  5. RIFAMPICIN [Suspect]
     Active Substance: RIFAMPIN
     Indication: INTERVERTEBRAL DISCITIS
     Route: 048
     Dates: start: 20180927, end: 20181010
  6. AMPHOTERICIN B. [Concomitant]
     Active Substance: AMPHOTERICIN B
  7. DIGOXIN. [Concomitant]
     Active Substance: DIGOXIN
  8. METOCLOPRAMIDE. [Concomitant]
     Active Substance: METOCLOPRAMIDE
  9. MORPHINE SULFATE. [Concomitant]
     Active Substance: MORPHINE SULFATE
  10. METFORMIN HYDROCHLORIDE/VILDAGLIPTIN [Concomitant]
  11. VANCOMYCIN HYDROCHLORIDE. [Suspect]
     Active Substance: VANCOMYCIN HYDROCHLORIDE
     Indication: INTERVERTEBRAL DISCITIS
     Route: 041
     Dates: start: 20180925, end: 20181004
  12. PREGABALIN. [Concomitant]
     Active Substance: PREGABALIN
  13. FLUINDIONE [Concomitant]
     Active Substance: FLUINDIONE
  14. GLICLAZIDE [Concomitant]
     Active Substance: GLICLAZIDE
  15. ENOXAPARIN SODIUM. [Concomitant]
     Active Substance: ENOXAPARIN SODIUM
  16. PANTOPRAZOLE [Concomitant]
     Active Substance: PANTOPRAZOLE
  17. FENOFIBRATE. [Concomitant]
     Active Substance: FENOFIBRATE
  18. LERCANIDIPINE HYDROCHLORIDE [Concomitant]
     Active Substance: LERCANIDIPINE HYDROCHLORIDE

REACTIONS (4)
  - Drug level above therapeutic [Recovered/Resolved]
  - Overdose [Unknown]
  - Acute kidney injury [Not Recovered/Not Resolved]
  - Thrombocytopenia [Not Recovered/Not Resolved]

NARRATIVE: CASE EVENT DATE: 20181002
